FAERS Safety Report 18855483 (Version 12)
Quarter: 2022Q4

REPORT INFORMATION
  Report Type: Report from Study
  Country: US (occurrence: None)
  Receive Date: 20210206
  Receipt Date: 20221010
  Transmission Date: 20230112
  Serious: Yes (Death, Hospitalization)
  Sender: FDA-Public Use
  Company Number: US-ROCHE-2755804

PATIENT
  Age: 75 Year
  Sex: Male
  Weight: 93.7 kg

DRUGS (25)
  1. ATEZOLIZUMAB [Suspect]
     Active Substance: ATEZOLIZUMAB
     Indication: Hormone-refractory prostate cancer
     Dosage: 11/DEC/2020, PATIENT RECEIVED MOST RECENT DOSE OF ATEZOLIZUMAB PRIOR TO EVENT?ONSET
     Route: 041
     Dates: start: 20200518
  2. CABOZANTINIB [Suspect]
     Active Substance: CABOZANTINIB
     Indication: Hormone-refractory prostate cancer
     Dosage: 10/JUL2020, RECEIVED MOST RECENT DOSE OF CABOZANTINIB PRIOR TO EVENT ONSET, THERAPY DURATION: 6 MONT
     Route: 048
     Dates: start: 20200518, end: 20201215
  3. PROLIA [Concomitant]
     Active Substance: DENOSUMAB
  4. AMLODIPINE BESYLATE [Concomitant]
     Active Substance: AMLODIPINE BESYLATE
  5. ATORVASTATIN CALCIUM [Concomitant]
     Active Substance: ATORVASTATIN CALCIUM
  6. LOSARTAN POTASSIUM [Concomitant]
     Active Substance: LOSARTAN POTASSIUM
  7. METFORMIN HYDROCHLORIDE [Concomitant]
     Active Substance: METFORMIN HYDROCHLORIDE
  8. FLUTICASONE PROPIONATE [Concomitant]
     Active Substance: FLUTICASONE PROPIONATE
  9. LEVAQUIN [Concomitant]
     Active Substance: LEVOFLOXACIN
  10. NEULASTA [Concomitant]
     Active Substance: PEGFILGRASTIM
  11. ZOFRAN [Concomitant]
     Active Substance: ONDANSETRON HYDROCHLORIDE
  12. IMODIUM [Concomitant]
     Active Substance: LOPERAMIDE HYDROCHLORIDE
  13. METAMUCIL [Concomitant]
     Active Substance: PLANTAGO SEED
  14. MIRALAX [Concomitant]
     Active Substance: POLYETHYLENE GLYCOL 3350
  15. STOOL SOFTENER (DOCUSATE) [Concomitant]
     Active Substance: DOCUSATE
  16. TUMS [Concomitant]
     Active Substance: CALCIUM CARBONATE
  17. IBUPROFEN [Concomitant]
     Active Substance: IBUPROFEN
  18. LUPRON [Concomitant]
     Active Substance: LEUPROLIDE ACETATE
  19. XARELTO [Concomitant]
     Active Substance: RIVAROXABAN
  20. FLOMAX [Concomitant]
     Active Substance: TAMSULOSIN HYDROCHLORIDE
  21. LOVENOX [Concomitant]
     Active Substance: ENOXAPARIN SODIUM
  22. PANTOPRAZOLE SODIUM [Concomitant]
     Active Substance: PANTOPRAZOLE SODIUM
  23. FAMOTIDINE [Concomitant]
     Active Substance: FAMOTIDINE
  24. ZITHROMAX [Concomitant]
     Active Substance: AZITHROMYCIN DIHYDRATE
  25. ERGOCALCIFEROL [Concomitant]
     Active Substance: ERGOCALCIFEROL

REACTIONS (6)
  - Pleural effusion [Not Recovered/Not Resolved]
  - Atrial fibrillation [Recovered/Resolved with Sequelae]
  - Pericardial effusion [Recovered/Resolved with Sequelae]
  - Disease progression [Fatal]
  - Nephrolithiasis [Recovered/Resolved]
  - Pleural effusion [Not Recovered/Not Resolved]

NARRATIVE: CASE EVENT DATE: 20200709
